FAERS Safety Report 8133795-4 (Version None)
Quarter: 2012Q1

REPORT INFORMATION
  Report Type: 
  Country: None (occurrence: None)
  Receive Date: 20120213
  Receipt Date: 20120213
  Transmission Date: 20120608
  Serious: No
  Sender: FDA-Public Use
  Company Number: None

PATIENT
  Age: 25 Year
  Sex: Male
  Weight: 52.163 kg

DRUGS (1)
  1. LACTAID FAST ACT [Suspect]
     Indication: LACTOSE INTOLERANCE
     Dosage: 1 PILL
     Route: 048
     Dates: start: 20090101, end: 20090301

REACTIONS (2)
  - PRODUCT SUBSTITUTION ISSUE [None]
  - VOMITING [None]
